FAERS Safety Report 7156175-7 (Version None)
Quarter: 2010Q4

REPORT INFORMATION
  Report Type: 
  Country: None (occurrence: None)
  Receive Date: 20101214
  Receipt Date: 20101203
  Transmission Date: 20110411
  Serious: Yes (Other)
  Sender: FDA-Public Use
  Company Number: US-GENZYME-FLUD-1000512

PATIENT
  Age: 59 Year
  Sex: Male

DRUGS (12)
  1. FLUDARA [Suspect]
     Indication: CHRONIC LYMPHOCYTIC LEUKAEMIA
     Dosage: 25 MG/M2 FOR 3-5 DAYS DEPENDING ON DOSE LEVEL
     Route: 042
  2. FLUDARA [Suspect]
     Dosage: UNK
     Route: 042
  3. RITUXIMAB [Suspect]
     Indication: CHRONIC LYMPHOCYTIC LEUKAEMIA
     Dosage: 50 MG/M2, ON DAY 1 OF THE FIRST 28 DAY CYCLE
     Route: 065
  4. RITUXIMAB [Suspect]
     Dosage: 325 MG/M2, ON DAY 3 OF THE FIRST 28 DAY CYCLE
     Route: 065
  5. RITUXIMAB [Suspect]
     Dosage: 375 MG/M2, ON DAY 1 OF EACH 28 DAY CYCLE
     Route: 065
  6. LENALIDOMIDE [Suspect]
     Indication: CHRONIC LYMPHOCYTIC LEUKAEMIA
     Dosage: 2.5 MG, QD FOR DAYS 1-21 OF EACH CYCLE
     Route: 065
  7. LENALIDOMIDE [Suspect]
     Dosage: UNK MG, QD FOR DAYS 1-21 OF EACH CYCLE
     Route: 065
  8. TRIMETHOPRIM + SULFAMETHOXAZOLE [Concomitant]
     Indication: INFECTION PROPHYLAXIS
     Dosage: UNK
     Route: 065
  9. ACYCLOVIR SODIUM [Concomitant]
     Indication: INFECTION PROPHYLAXIS
     Dosage: UNK
     Route: 065
  10. ALLOPURINOL [Concomitant]
     Indication: PRODUCT USED FOR UNKNOWN INDICATION
     Dosage: UNK
     Route: 065
  11. SIMVASTATIN [Concomitant]
     Indication: PRODUCT USED FOR UNKNOWN INDICATION
     Dosage: UNK
     Route: 065
  12. I.V. SOLUTIONS [Concomitant]
     Indication: FLUID REPLACEMENT
     Dosage: UNK
     Route: 042

REACTIONS (4)
  - MYALGIA [None]
  - PYREXIA [None]
  - RASH [None]
  - RHABDOMYOLYSIS [None]
